FAERS Safety Report 5957568-3 (Version None)
Quarter: 2008Q4

REPORT INFORMATION
  Report Type: 
  Country: None (occurrence: None)
  Receive Date: 20081117
  Receipt Date: 20081117
  Transmission Date: 20090506
  Serious: Yes (Other)
  Sender: FDA-Public Use
  Company Number: None

PATIENT
  Sex: Female
  Weight: 71.6683 kg

DRUGS (1)
  1. LOTREL [Suspect]
     Indication: BLOOD PRESSURE
     Dosage: 1 A DAY DAILY

REACTIONS (1)
  - COUGH [None]
